FAERS Safety Report 5703659-1 (Version None)
Quarter: 2008Q2

REPORT INFORMATION
  Report Type: 
  Country: None (occurrence: None)
  Receive Date: 20080411
  Receipt Date: 20080328
  Transmission Date: 20081010
  Serious: Yes (Other)
  Sender: FDA-Public Use
  Company Number: PHEH2008US03278

PATIENT
  Age: 72 Year
  Sex: Female

DRUGS (3)
  1. HYDROCODONE BITARTRATE [Concomitant]
     Indication: OSTEOARTHRITIS
  2. LORAZEPAM [Concomitant]
     Indication: STRESS
  3. ZELNORM [Suspect]
     Dosage: 6 MG, QD
     Route: 048
     Dates: start: 20020101, end: 20070101

REACTIONS (9)
  - BLOOD GLUCOSE DECREASED [None]
  - DIPLOPIA [None]
  - FALL [None]
  - FRACTURED COCCYX [None]
  - HEART RATE IRREGULAR [None]
  - HIP FRACTURE [None]
  - MUSCULOSKELETAL DISCOMFORT [None]
  - NERVOUS SYSTEM DISORDER [None]
  - SYNCOPE [None]
